APPROVED DRUG PRODUCT: DOXORUBICIN HYDROCHLORIDE
Active Ingredient: DOXORUBICIN HYDROCHLORIDE
Strength: 150MG/75ML
Dosage Form/Route: INJECTABLE;INJECTION
Application: N050629 | Product #003
Applicant: PFIZER INC
Approved: Mar 28, 2011 | RLD: Yes | RS: No | Type: DISCN